FAERS Safety Report 21073069 (Version 1)
Quarter: 2022Q3

REPORT INFORMATION
  Report Type: Spontaneous
  Country: US (occurrence: US)
  Receive Date: 20220712
  Receipt Date: 20220712
  Transmission Date: 20221026
  Serious: No
  Sender: FDA-Public Use
  Company Number: US-SA-SAC20220708000756

PATIENT
  Age: 43 Year
  Sex: Male
  Weight: 57.15 kg

DRUGS (1)
  1. ALLEGRA [Suspect]
     Active Substance: FEXOFENADINE HYDROCHLORIDE
     Indication: Chronic disease
     Dosage: 180 MG, QD
     Route: 065

REACTIONS (1)
  - Paranasal sinus discomfort [Not Recovered/Not Resolved]
